FAERS Safety Report 25640856 (Version 1)
Quarter: 2025Q3

REPORT INFORMATION
  Report Type: Spontaneous
  Country: CA (occurrence: CA)
  Receive Date: 20250804
  Receipt Date: 20250804
  Transmission Date: 20251020
  Serious: Yes (Hospitalization)
  Sender: OTSUKA
  Company Number: CA-MMM-Otsuka-9CRXE1WK

PATIENT
  Sex: Female

DRUGS (1)
  1. SAMSCA [Suspect]
     Active Substance: TOLVAPTAN
     Indication: Hyponatraemia
     Route: 065

REACTIONS (1)
  - Alanine aminotransferase increased [Unknown]

NARRATIVE: CASE EVENT DATE: 20250701
